FAERS Safety Report 10841119 (Version 1)
Quarter: 2015Q1

REPORT INFORMATION
  Report Type: Spontaneous
  Country: US (occurrence: None)
  Receive Date: 20150218
  Receipt Date: 20150218
  Transmission Date: 20150721
  Serious: No
  Sender: FDA-Public Use
  Company Number: None

PATIENT
  Age: 47 Year
  Sex: Male

DRUGS (1)
  1. GILENYA [Suspect]
     Active Substance: FINGOLIMOD HYDROCHLORIDE
     Indication: MULTIPLE SCLEROSIS
     Route: 048

REACTIONS (9)
  - Fatigue [None]
  - Cardiac disorder [None]
  - Mobility decreased [None]
  - Muscle spasticity [None]
  - Condition aggravated [None]
  - Dizziness [None]
  - Diarrhoea [None]
  - Multiple sclerosis relapse [None]
  - Orthostatic hypotension [None]

NARRATIVE: CASE EVENT DATE: 20150217
